FAERS Safety Report 13641245 (Version 2)
Quarter: 2017Q3

REPORT INFORMATION
  Report Type: Spontaneous
  Country: US (occurrence: US)
  Receive Date: 20170612
  Receipt Date: 20170717
  Transmission Date: 20171127
  Serious: No
  Sender: FDA-Public Use
  Company Number: US-ASTRAZENECA-2017SE60930

PATIENT
  Age: 29858 Day
  Sex: Female

DRUGS (1)
  1. BYDUREON [Suspect]
     Active Substance: EXENATIDE
     Route: 065
     Dates: start: 20170607

REACTIONS (8)
  - Eye disorder [Unknown]
  - Nervousness [Unknown]
  - Drug administration error [Unknown]
  - Limb discomfort [Unknown]
  - Blood glucose decreased [Unknown]
  - Intentional product use issue [Unknown]
  - Memory impairment [Unknown]
  - Device malfunction [Unknown]

NARRATIVE: CASE EVENT DATE: 20170607
